FAERS Safety Report 6185410-7 (Version None)
Quarter: 2009Q2

REPORT INFORMATION
  Report Type: 
  Country: None (occurrence: None)
  Receive Date: 20090511
  Receipt Date: 20090428
  Transmission Date: 20091009
  Serious: Yes (Other)
  Sender: FDA-Public Use
  Company Number: JP-BAYER-200911365BYL

PATIENT
  Age: 72 Year
  Sex: Female
  Weight: 43 kg

DRUGS (6)
  1. FLUDARA [Suspect]
     Indication: ACUTE MYELOID LEUKAEMIA
     Dosage: AS USED: 30 MG/M2  UNIT DOSE: 50 MG
     Route: 042
     Dates: start: 20080703, end: 20080708
  2. BUSULFEX [Concomitant]
     Indication: ACUTE MYELOID LEUKAEMIA
     Dosage: AS USED: 3.2 MG/KG
     Route: 042
     Dates: start: 20080704, end: 20080707
  3. DEPAKENE [Concomitant]
     Indication: CONVULSION PROPHYLAXIS
     Dosage: TOTAL DAILY DOSE: 800 MG  UNIT DOSE: 200 MG
     Route: 048
     Dates: start: 20080702, end: 20080706
  4. DEPAKENE [Concomitant]
     Dosage: TOTAL DAILY DOSE: 1200 MG  UNIT DOSE: 200 MG
     Route: 048
     Dates: start: 20080707, end: 20080709
  5. CONCENTRATED RED CELLS [Concomitant]
     Indication: PACKED RED BLOOD CELL TRANSFUSION
     Route: 042
     Dates: start: 20080706, end: 20080805
  6. PLATELETS [Concomitant]
     Indication: PLATELET TRANSFUSION
     Route: 042
     Dates: start: 20080714, end: 20080819

REACTIONS (1)
  - ACUTE GRAFT VERSUS HOST DISEASE [None]
